FAERS Safety Report 10004913 (Version 3)
Quarter: 2014Q1

REPORT INFORMATION
  Report Type: Spontaneous
  Country: JP (occurrence: JP)
  Receive Date: 20140312
  Receipt Date: 20140321
  Transmission Date: 20141002
  Serious: Yes (Other)
  Sender: FDA-Public Use
  Company Number: JP-PFIZER INC-2014047493

PATIENT
  Age: 54 Year
  Sex: Female

DRUGS (5)
  1. ZOSYN [Suspect]
     Indication: CELLULITIS
     Dosage: 13.5 G, DAILY
     Route: 041
     Dates: start: 20140204, end: 20140212
  2. CELECOX [Concomitant]
     Dosage: 200 MG, DAILY
     Route: 048
  3. DETRUSITOL [Concomitant]
     Dosage: 4 MG, DAILY
     Route: 048
  4. PRIMPERAN [Concomitant]
     Dosage: 5 MG, DAILY
     Route: 048
  5. SOPHIA-C [Concomitant]
     Dosage: 1 DF, DAILY
     Route: 048

REACTIONS (1)
  - Toxic skin eruption [Unknown]
